FAERS Safety Report 8346650 (Version 3)
Quarter: 2012Q4

REPORT INFORMATION
  Report Type: 
  Country: US (occurrence: US)
  Receive Date: 20120120
  Receipt Date: 20121012
  Transmission Date: 20130627
  Serious: No
  Sender: FDA-Public Use
  Company Number: US-PFIZER INC-2012015835

PATIENT
  Age: 87 Year
  Sex: Female

DRUGS (2)
  1. LIPITOR [Suspect]
     Dosage: 40 mg (one tablet), daily
     Route: 048
  2. NORVASC [Suspect]
     Dosage: 5 mg (one tablet), daily
     Route: 048

REACTIONS (1)
  - Osteoporosis [Unknown]
